FAERS Safety Report 13094920 (Version 5)
Quarter: 2017Q3

REPORT INFORMATION
  Report Type: Spontaneous
  Country: US (occurrence: US)
  Receive Date: 20170106
  Receipt Date: 20170809
  Transmission Date: 20171127
  Serious: Yes (Other)
  Sender: FDA-Public Use
  Company Number: US-ALLERGAN-1700280US

PATIENT
  Age: 92 Year
  Sex: Female

DRUGS (1)
  1. ALPHAGAN P [Suspect]
     Active Substance: BRIMONIDINE TARTRATE
     Indication: BLINDNESS UNILATERAL
     Dosage: UNK, 11 TIMES A DAY
     Route: 047

REACTIONS (5)
  - Eye disorder [Not Recovered/Not Resolved]
  - Inappropriate schedule of drug administration [Unknown]
  - Off label use [Unknown]
  - Malaise [Not Recovered/Not Resolved]
  - Blindness unilateral [Not Recovered/Not Resolved]
